FAERS Safety Report 5801765-4 (Version None)
Quarter: 2008Q3

REPORT INFORMATION
  Report Type: 
  Country: None (occurrence: None)
  Receive Date: 20080707
  Receipt Date: 20080701
  Transmission Date: 20090109
  Serious: Yes (Life-Threatening, Hospitalization, Other)
  Sender: FDA-Public Use
  Company Number: JP-AVENTIS-200810878JP

PATIENT
  Age: 76 Year
  Sex: Male
  Weight: 59 kg

DRUGS (15)
  1. TAXOTERE [Suspect]
     Indication: NON-SMALL CELL LUNG CANCER
     Route: 041
     Dates: start: 20080312, end: 20080312
  2. ANCER 20 [Concomitant]
     Route: 058
     Dates: start: 20080208, end: 20080307
  3. NASEA [Concomitant]
     Route: 041
     Dates: start: 20080312, end: 20080312
  4. DECADRON [Concomitant]
     Route: 041
     Dates: start: 20080312, end: 20080312
  5. RADIOTHERAPY [Concomitant]
     Indication: NON-SMALL CELL LUNG CANCER
     Dosage: DOSE: 60 GY/TOTAL
     Dates: start: 20080123, end: 20080307
  6. ESBERIVEN                          /00021901/ [Concomitant]
     Dosage: DOSE: 1 TABLET
     Route: 048
     Dates: end: 20080315
  7. OTHER UROLOGICALS, INCL ANTISPASMODICS [Concomitant]
     Route: 048
     Dates: end: 20080315
  8. ATELEC [Concomitant]
     Indication: HYPERTENSION
     Route: 048
     Dates: end: 20080315
  9. PRAVASTATIN [Concomitant]
     Route: 048
     Dates: end: 20080315
  10. DIOVANE [Concomitant]
     Indication: HYPERTENSION
     Route: 048
     Dates: end: 20080315
  11. DOMPERIDONE [Concomitant]
     Dosage: DOSE: 1 TABLET
     Route: 048
     Dates: end: 20080315
  12. MEXITIL [Concomitant]
     Indication: TACHYARRHYTHMIA
     Route: 048
     Dates: end: 20080315
  13. SEPAZON [Concomitant]
     Route: 048
     Dates: end: 20080315
  14. LUDIOMIL                           /00331902/ [Concomitant]
     Route: 048
     Dates: end: 20080315
  15. HERBAL PREPARATION [Concomitant]
     Dosage: DOSE: 1 TABLET
     Route: 048
     Dates: end: 20080315

REACTIONS (4)
  - CYTOMEGALOVIRUS ENTEROCOLITIS [None]
  - HEPATIC FUNCTION ABNORMAL [None]
  - ILEUS PARALYTIC [None]
  - RENAL DISORDER [None]
